FAERS Safety Report 18981812 (Version 2)
Quarter: 2021Q2

REPORT INFORMATION
  Report Type: Spontaneous
  Country: US (occurrence: US)
  Receive Date: 20210308
  Receipt Date: 20210604
  Transmission Date: 20210717
  Serious: Yes (Other)
  Sender: FDA-Public Use
  Company Number: US-PFIZER INC-2021231124

PATIENT
  Age: 75 Year
  Sex: Female

DRUGS (1)
  1. IBRANCE [Suspect]
     Active Substance: PALBOCICLIB
     Indication: BREAST CANCER FEMALE
     Dosage: UNK
     Route: 048

REACTIONS (10)
  - Skin atrophy [Unknown]
  - Lacrimation increased [Unknown]
  - Retinitis pigmentosa [Unknown]
  - Neoplasm progression [Unknown]
  - Blindness [Unknown]
  - Condition aggravated [Unknown]
  - Neuropathy peripheral [Unknown]
  - White blood cell count decreased [Unknown]
  - Neuralgia [Unknown]
  - Nausea [Unknown]
